FAERS Safety Report 16283282 (Version 3)
Quarter: 2022Q1

REPORT INFORMATION
  Report Type: Spontaneous
  Country: US (occurrence: None)
  Receive Date: 20190507
  Receipt Date: 20220119
  Transmission Date: 20220424
  Serious: Yes (Other)
  Sender: FDA-Public Use
  Company Number: 2019SE62463

PATIENT
  Sex: Female
  Weight: 108.9 kg

DRUGS (60)
  1. PRILOSEC [Suspect]
     Active Substance: OMEPRAZOLE MAGNESIUM
     Indication: Gastrooesophageal reflux disease
     Route: 048
     Dates: start: 1995, end: 2014
  2. PRILOSEC [Suspect]
     Active Substance: OMEPRAZOLE MAGNESIUM
     Indication: Gastrooesophageal reflux disease
     Route: 048
     Dates: start: 1995, end: 2014
  3. PRILOSEC [Suspect]
     Active Substance: OMEPRAZOLE MAGNESIUM
     Indication: Gastrooesophageal reflux disease
     Dosage: GENERIC OMEPRAZOLE
     Route: 065
     Dates: end: 2013
  4. NEXIUM [Suspect]
     Active Substance: ESOMEPRAZOLE MAGNESIUM
     Indication: Gastrooesophageal reflux disease
     Route: 048
     Dates: start: 2012, end: 2014
  5. NEXIUM [Suspect]
     Active Substance: ESOMEPRAZOLE MAGNESIUM
     Indication: Gastrooesophageal reflux disease
     Dosage: GENERIC ESOMEPRAZOLE
     Route: 065
  6. NEXIUM 24HR [Suspect]
     Active Substance: ESOMEPRAZOLE MAGNESIUM
     Indication: Gastrooesophageal reflux disease
     Route: 048
     Dates: start: 2014
  7. PRILOSEC OTC [Suspect]
     Active Substance: OMEPRAZOLE MAGNESIUM
     Indication: Gastrooesophageal reflux disease
     Route: 048
     Dates: start: 2003, end: 2014
  8. LANSOPRAZOLE [Suspect]
     Active Substance: LANSOPRAZOLE
     Indication: Gastrooesophageal reflux disease
     Route: 065
     Dates: start: 201405, end: 201408
  9. PANTOPRAZOLE [Suspect]
     Active Substance: PANTOPRAZOLE
     Indication: Gastrooesophageal reflux disease
     Route: 065
     Dates: start: 201408, end: 201505
  10. SPIRONOLACTONE [Concomitant]
     Active Substance: SPIRONOLACTONE
     Indication: Hypertension
     Dates: start: 2008, end: 2019
  11. SPIRONOLACTONE [Concomitant]
     Active Substance: SPIRONOLACTONE
     Indication: Diuretic therapy
     Dates: start: 2008, end: 2019
  12. LEVOTHYROXINE [Concomitant]
     Active Substance: LEVOTHYROXINE
     Indication: Hypothyroidism
     Dates: start: 2008, end: 2019
  13. INSULIN NOS [Concomitant]
     Active Substance: INSULIN NOS
     Indication: Diabetes mellitus
     Dates: start: 2008, end: 2019
  14. SPIRIVA [Concomitant]
     Active Substance: TIOTROPIUM BROMIDE MONOHYDRATE
     Indication: Chronic obstructive pulmonary disease
     Dates: start: 2008, end: 2019
  15. SODIUM BICARBONATE [Concomitant]
     Active Substance: SODIUM BICARBONATE
     Indication: pH body fluid abnormal
     Dates: start: 2008, end: 2019
  16. SODIUM BICARBONATE [Concomitant]
     Active Substance: SODIUM BICARBONATE
     Indication: Infection
     Dates: start: 2008, end: 2019
  17. DOXYCYCLINE [Concomitant]
     Active Substance: DOXYCYCLINE
     Indication: Pemphigoid
     Dates: start: 2008, end: 2019
  18. DOXYCYCLINE [Concomitant]
     Active Substance: DOXYCYCLINE
     Indication: Infection
     Dates: start: 2008, end: 2019
  19. LASIX [Concomitant]
     Active Substance: FUROSEMIDE
     Indication: Nephropathy
     Dates: start: 2008, end: 2019
  20. LASIX [Concomitant]
     Active Substance: FUROSEMIDE
     Indication: Diuretic therapy
     Dates: start: 2008, end: 2019
  21. FUROSEMIDE [Concomitant]
     Active Substance: FUROSEMIDE
     Indication: Diuretic therapy
  22. FOLIC ACID [Concomitant]
     Active Substance: FOLIC ACID
  23. LANTUS SOLOSTAR [Concomitant]
     Active Substance: INSULIN GLARGINE
  24. WARFARIN [Concomitant]
     Active Substance: WARFARIN
  25. GLUCOSAMINE [Concomitant]
     Active Substance: GLUCOSAMINE
  26. MAGNESIUM OXIDE [Concomitant]
     Active Substance: MAGNESIUM OXIDE
  27. FOSINOPRIL [Concomitant]
     Active Substance: FOSINOPRIL
  28. SERTRALINE HYDROCHLORIDE [Concomitant]
     Active Substance: SERTRALINE HYDROCHLORIDE
  29. AZITHROMYCIN [Concomitant]
     Active Substance: AZITHROMYCIN
  30. CLINDAMYCIN [Concomitant]
     Active Substance: CLINDAMYCIN
  31. AMLODIPINE [Concomitant]
     Active Substance: AMLODIPINE BESYLATE
  32. LISINOPRIL [Concomitant]
     Active Substance: LISINOPRIL
     Indication: Hypertension
     Dates: start: 200001
  33. METOPRALOL [Concomitant]
     Indication: Hypertension
     Dates: start: 200601
  34. TRAMADOL [Concomitant]
     Active Substance: TRAMADOL
     Indication: Pain
     Dates: start: 20141018, end: 20150118
  35. AMOXICILLIN [Concomitant]
     Active Substance: AMOXICILLIN
     Indication: Infection
     Dates: start: 20150319, end: 20150419
  36. AMPICILLIN [Concomitant]
     Active Substance: AMPICILLIN
     Indication: Infection
     Dates: start: 20170213, end: 20170323
  37. CEPHALEXIN [Concomitant]
     Active Substance: CEPHALEXIN
     Indication: Infection
     Dates: start: 20170213, end: 20170323
  38. CIPROFLOXACIN [Concomitant]
     Active Substance: CIPROFLOXACIN
     Indication: Infection
     Dates: start: 20100831, end: 20100911
  39. MOXIFLOXACIN [Concomitant]
     Active Substance: MOXIFLOXACIN
     Indication: Infection
     Dates: start: 20100831, end: 20100911
  40. SIMVASTATIN [Concomitant]
     Active Substance: SIMVASTATIN
     Indication: Blood cholesterol increased
     Dates: start: 20100831, end: 20100911
  41. FLUOXETINE [Concomitant]
     Active Substance: FLUOXETINE HYDROCHLORIDE
     Indication: Antidepressant therapy
     Dates: start: 20070103, end: 20070203
  42. MAGNESIUM [Concomitant]
     Active Substance: MAGNESIUM
  43. VITAMIN B [Concomitant]
     Active Substance: VITAMIN B
  44. VITAMIN D [Concomitant]
     Active Substance: VITAMIN D NOS
  45. FAMOTIDINE [Concomitant]
     Active Substance: FAMOTIDINE
  46. PEPCID [Concomitant]
     Active Substance: FAMOTIDINE
  47. TUMS [Concomitant]
     Active Substance: CALCIUM CARBONATE
     Dates: start: 199301
  48. SERTRALINE [Concomitant]
     Active Substance: SERTRALINE HYDROCHLORIDE
  49. ATROVENT [Concomitant]
     Active Substance: IPRATROPIUM BROMIDE
  50. PREMARIN [Concomitant]
     Active Substance: ESTROGENS, CONJUGATED
  51. LEXAPRO [Concomitant]
     Active Substance: ESCITALOPRAM OXALATE
  52. ENOXAPARIN [Concomitant]
     Active Substance: ENOXAPARIN
  53. SUCRALFATE [Concomitant]
     Active Substance: SUCRALFATE
  54. CLOTRIM [Concomitant]
  55. CITALOPRAM [Concomitant]
     Active Substance: CITALOPRAM HYDROBROMIDE
  56. SPIRIVA [Concomitant]
     Active Substance: TIOTROPIUM BROMIDE MONOHYDRATE
  57. NYSTATIN [Concomitant]
     Active Substance: NYSTATIN
  58. KETOCONAZOLE [Concomitant]
     Active Substance: KETOCONAZOLE
  59. NITROFURANTOIN [Concomitant]
     Active Substance: NITROFURANTOIN
  60. SHINGRIX [Concomitant]
     Active Substance: RECOMBINANT VARICELLA ZOSTER VIRUS (VZV) GLYCOPROTEIN E

REACTIONS (2)
  - Chronic kidney disease [Not Recovered/Not Resolved]
  - Renal failure [Unknown]
